FAERS Safety Report 6544906-6 (Version None)
Quarter: 2010Q1

REPORT INFORMATION
  Report Type: 
  Country: None (occurrence: None)
  Receive Date: 20100121
  Receipt Date: 20100114
  Transmission Date: 20100710
  Serious: Yes (Death, Hospitalization)
  Sender: FDA-Public Use
  Company Number: US-SANOFI-AVENTIS-2010SA002602

PATIENT
  Age: 62 Year
  Sex: Male

DRUGS (4)
  1. TAXOTERE [Suspect]
     Indication: NON-SMALL CELL LUNG CANCER
     Route: 051
     Dates: start: 20090608, end: 20090608
  2. TAXOTERE [Suspect]
     Route: 051
     Dates: start: 20090615, end: 20090615
  3. GEMZAR [Suspect]
     Indication: NON-SMALL CELL LUNG CANCER
     Route: 065
     Dates: start: 20090608, end: 20090608
  4. GEMZAR [Suspect]
     Route: 065
     Dates: start: 20090615, end: 20090615

REACTIONS (12)
  - CONFUSIONAL STATE [None]
  - DISEASE PROGRESSION [None]
  - ELECTROLYTE IMBALANCE [None]
  - HEPATIC ENCEPHALOPATHY [None]
  - ISCHAEMIC HEPATITIS [None]
  - PANCYTOPENIA [None]
  - PNEUMONIA [None]
  - RENAL FAILURE ACUTE [None]
  - RESPIRATORY FAILURE [None]
  - SEPSIS [None]
  - SLUGGISHNESS [None]
  - UNRESPONSIVE TO STIMULI [None]
